FAERS Safety Report 5572122-3 (Version None)
Quarter: 2007Q4

REPORT INFORMATION
  Report Type: 
  Country: None (occurrence: None)
  Receive Date: 20071221
  Receipt Date: 20071212
  Transmission Date: 20080405
  Serious: Yes (Hospitalization, Other)
  Sender: FDA-Public Use
  Company Number: US-PFIZER INC-2007105898

PATIENT
  Sex: Male

DRUGS (2)
  1. CHANTIX [Suspect]
  2. ALL OTHER THERAPEUTIC PRODUCTS [Concomitant]
     Indication: MENTAL DISORDER

REACTIONS (3)
  - SELF-MEDICATION [None]
  - SUICIDAL IDEATION [None]
  - SUICIDE ATTEMPT [None]
